FAERS Safety Report 4350806-2 (Version None)
Quarter: 2004Q2

REPORT INFORMATION
  Report Type: 
  Country: None (occurrence: None)
  Receive Date: 20040430
  Receipt Date: 20040423
  Transmission Date: 20050107
  Serious: Yes (Hospitalization)
  Sender: FDA-Public Use
  Company Number: FR-ROCHE-365649

PATIENT
  Age: 1 Year
  Sex: Female

DRUGS (2)
  1. ROACCUTANE [Suspect]
     Indication: NEUROBLASTOMA
     Dosage: REINTRODUCED AT 80 MG/M2.
     Route: 065
  2. ROACCUTANE [Suspect]
     Dosage: DOSAGE REGIMEN REPORTED AS 160 MG/M2.
     Route: 065
     Dates: start: 20040106

REACTIONS (1)
  - HYPERCALCAEMIA [None]
